FAERS Safety Report 24077203 (Version 1)
Quarter: 2024Q3

REPORT INFORMATION
  Report Type: Spontaneous
  Country: JP (occurrence: JP)
  Receive Date: 20240711
  Receipt Date: 20240711
  Transmission Date: 20241016
  Serious: Yes (Death, Hospitalization)
  Sender: AMGEN
  Company Number: JP-DSJP-DSJ-2024-108235

PATIENT
  Age: 72 Year
  Sex: Female

DRUGS (1)
  1. DENOSUMAB [Suspect]
     Active Substance: DENOSUMAB
     Indication: Metastases to bone
     Dosage: UNK
     Route: 065
     Dates: end: 201505

REACTIONS (1)
  - Osteonecrosis of jaw [Fatal]

NARRATIVE: CASE EVENT DATE: 20151221
